FAERS Safety Report 9454830 (Version 3)
Quarter: 2013Q3

REPORT INFORMATION
  Report Type: Spontaneous
  Country: IT (occurrence: IT)
  Receive Date: 20130813
  Receipt Date: 20130906
  Transmission Date: 20140515
  Serious: Yes (Hospitalization)
  Sender: FDA-Public Use
  Company Number: IT-ROCHE-1260771

PATIENT
  Age: 41 Year
  Sex: Female

DRUGS (3)
  1. RIVOTRIL [Suspect]
     Indication: BIPOLAR DISORDER
     Dosage: ORAL DROPS 2,5MG/ML
     Route: 048
  2. CARBOLITHIUM [Concomitant]
     Dosage: 300 MG
     Route: 048
  3. LAMICTAL [Concomitant]
     Dosage: 100 MG
     Route: 065

REACTIONS (3)
  - Poisoning [Unknown]
  - Drug abuse [Unknown]
  - Intentional self-injury [Unknown]
